FAERS Safety Report 6464242-6 (Version None)
Quarter: 2009Q4

REPORT INFORMATION
  Report Type: 
  Country: None (occurrence: None)
  Receive Date: 20091201
  Receipt Date: 20091127
  Transmission Date: 20100525
  Serious: Yes (Death, Other)
  Sender: FDA-Public Use
  Company Number: PHHY2009JP48059

PATIENT
  Age: 31 Year
  Sex: Male

DRUGS (13)
  1. SANDIMMUNE [Suspect]
     Indication: CORD BLOOD TRANSPLANT THERAPY
     Dosage: 3 MG/KG DAILY
     Dates: start: 20081124
  2. SANDIMMUNE [Suspect]
     Indication: PROPHYLAXIS AGAINST GRAFT VERSUS HOST DISEASE
     Dosage: 3 MG/KG DAILY
  3. NEORAL [Suspect]
     Indication: CORD BLOOD TRANSPLANT THERAPY
     Route: 048
  4. NEORAL [Suspect]
     Indication: PROPHYLAXIS AGAINST GRAFT VERSUS HOST DISEASE
     Route: 048
  5. MYCOPHENOLATE MOFETIL [Concomitant]
     Indication: PROPHYLAXIS AGAINST GRAFT VERSUS HOST DISEASE
  6. GEMTUZUMAB OZOGAMICIN [Concomitant]
     Indication: CORD BLOOD TRANSPLANT THERAPY
     Dosage: UNK
  7. GEMTUZUMAB OZOGAMICIN [Concomitant]
     Dosage: UNK
  8. FLUDARABINE [Concomitant]
     Indication: CORD BLOOD TRANSPLANT THERAPY
     Dosage: UNK
  9. MELPHALAN [Concomitant]
     Indication: CORD BLOOD TRANSPLANT THERAPY
     Dosage: UNK
  10. TOTAL BODY IRRADIATION [Concomitant]
     Indication: CORD BLOOD TRANSPLANT THERAPY
  11. CYTOSINE ARABINOSIDE [Concomitant]
     Indication: CORD BLOOD TRANSPLANT THERAPY
  12. CYTARABINE [Concomitant]
  13. LOW MOLECULAR WEIGHT HEPARIN [Concomitant]
     Indication: PROPHYLAXIS

REACTIONS (10)
  - ABDOMINAL PAIN UPPER [None]
  - ASCITES [None]
  - COAGULOPATHY [None]
  - COMPLICATIONS OF BONE MARROW TRANSPLANT [None]
  - HEPATOMEGALY [None]
  - HYPERBILIRUBINAEMIA [None]
  - LEUKAEMIA RECURRENT [None]
  - RETROGRADE PORTAL VEIN FLOW [None]
  - TRANSAMINASES INCREASED [None]
  - VENOOCCLUSIVE LIVER DISEASE [None]
